FAERS Safety Report 6786067-4 (Version None)
Quarter: 2010Q2

REPORT INFORMATION
  Report Type: 
  Country: None (occurrence: None)
  Receive Date: 20100623
  Receipt Date: 20100611
  Transmission Date: 20101027
  Serious: Yes (Other)
  Sender: FDA-Public Use
  Company Number: PHHY2010FR38981

PATIENT

DRUGS (1)
  1. EXELON [Suspect]
     Dosage: 4.6 MG DAILY
     Route: 062

REACTIONS (1)
  - MALAISE [None]
